FAERS Safety Report 10882959 (Version 1)
Quarter: 2015Q1

REPORT INFORMATION
  Report Type: Spontaneous
  Country: US (occurrence: US)
  Receive Date: 20150303
  Receipt Date: 20150303
  Transmission Date: 20150721
  Serious: Yes (Hospitalization, Congenital Anomaly, Other)
  Sender: FDA-Public Use
  Company Number: US-APOTEX-2015AP006977

PATIENT
  Age: 0 Day
  Sex: Female
  Weight: 1.81 kg

DRUGS (15)
  1. PAXIL [Suspect]
     Active Substance: PAROXETINE HYDROCHLORIDE
     Indication: SLEEP DISORDER
  2. FOLIC ACID. [Concomitant]
     Active Substance: FOLIC ACID
     Indication: PRODUCT USED FOR UNKNOWN INDICATION
     Dosage: UNK
     Route: 064
     Dates: end: 2002
  3. HUMULIN N [Concomitant]
     Active Substance: INSULIN HUMAN
     Indication: TYPE 1 DIABETES MELLITUS
     Dosage: UNK
     Route: 064
     Dates: end: 2002
  4. PAXIL [Suspect]
     Active Substance: PAROXETINE HYDROCHLORIDE
     Indication: DEPRESSION
     Dosage: 40 MG, QD
     Route: 064
  5. GLUCOVANCE [Concomitant]
     Active Substance: GLYBURIDE\METFORMIN HYDROCHLORIDE
     Indication: PRODUCT USED FOR UNKNOWN INDICATION
     Dosage: UNK
     Route: 064
     Dates: end: 2002
  6. AUGMENTIN [Concomitant]
     Active Substance: AMOXICILLIN\CLAVULANATE POTASSIUM
     Indication: PELVIC DISCOMFORT
     Dosage: UNK
     Route: 064
     Dates: end: 2002
  7. PRENATAL VITAMINS                  /07426201/ [Concomitant]
     Active Substance: ASCORBIC ACID\BIOTIN\MINERALS\NIACIN\RETINOL\TOCOPHEROL\VITAMIN B\VITAMIN D
     Indication: PRODUCT USED FOR UNKNOWN INDICATION
     Dosage: DAILY
     Route: 064
     Dates: end: 2002
  8. PREDNISONE. [Concomitant]
     Active Substance: PREDNISONE
     Indication: RHEUMATOID ARTHRITIS
     Dosage: 10 MG, QD
     Route: 064
     Dates: end: 2002
  9. INSULIN [Concomitant]
     Active Substance: INSULIN NOS
     Indication: PRODUCT USED FOR UNKNOWN INDICATION
     Dosage: UNK
     Route: 064
     Dates: end: 2002
  10. LANTUS [Concomitant]
     Active Substance: INSULIN GLARGINE
     Indication: PRODUCT USED FOR UNKNOWN INDICATION
     Dosage: UNK
     Route: 064
     Dates: end: 2002
  11. ZESTORETIC [Concomitant]
     Active Substance: HYDROCHLOROTHIAZIDE\LISINOPRIL
     Indication: HYPERTENSION
     Dosage: DAILY
     Route: 064
     Dates: end: 2002
  12. NATALCARE PLUS [Concomitant]
     Indication: PRODUCT USED FOR UNKNOWN INDICATION
     Dosage: DAILY
     Route: 064
     Dates: end: 2002
  13. PAXIL [Suspect]
     Active Substance: PAROXETINE HYDROCHLORIDE
     Indication: MOOD ALTERED
  14. UNASYN [Concomitant]
     Active Substance: AMPICILLIN SODIUM\SULBACTAM SODIUM
     Indication: PELVIC DISCOMFORT
     Dosage: UNK
     Route: 064
     Dates: end: 2002
  15. SIMVASTATIN. [Concomitant]
     Active Substance: SIMVASTATIN
     Indication: PRODUCT USED FOR UNKNOWN INDICATION
     Dosage: UNK
     Route: 064
     Dates: end: 2002

REACTIONS (34)
  - Blood creatinine increased [Unknown]
  - Metabolic acidosis [Unknown]
  - Hyperbilirubinaemia neonatal [Unknown]
  - Cholesteatoma [Unknown]
  - Hypertension [Unknown]
  - Hypotonia neonatal [Unknown]
  - Neonatal respiratory failure [Unknown]
  - Anaemia neonatal [Unknown]
  - Hypoglycaemia neonatal [Unknown]
  - Atrial septal defect [Unknown]
  - Craniosynostosis [Unknown]
  - Ventricular septal defect [Unknown]
  - Foetal exposure during pregnancy [Unknown]
  - Ear malformation [Unknown]
  - Rib hypoplasia [Unknown]
  - Foetal distress syndrome [Unknown]
  - Pulmonary artery stenosis congenital [Unknown]
  - Intraventricular haemorrhage neonatal [Unknown]
  - Pectus excavatum [Unknown]
  - Congenital heart valve disorder [Unknown]
  - Hemivertebra [Unknown]
  - Neonatal hypotension [Unknown]
  - Deafness [Unknown]
  - Premature baby [Unknown]
  - Torticollis [Unknown]
  - Neonatal respiratory depression [Unknown]
  - Blood urea increased [Unknown]
  - Conjunctivitis [Unknown]
  - Congenital scoliosis [Unknown]
  - Patent ductus arteriosus [Unknown]
  - Plagiocephaly [Unknown]
  - Hypocalcaemia [Unknown]
  - Pulmonary arteriovenous fistula [Unknown]
  - Ventricular hypertrophy [Unknown]

NARRATIVE: CASE EVENT DATE: 20020313
